FAERS Safety Report 4899595-3 (Version None)
Quarter: 2006Q1

REPORT INFORMATION
  Report Type: 
  Country: None (occurrence: None)
  Receive Date: 20060131
  Receipt Date: 20060124
  Transmission Date: 20060701
  Serious: No
  Sender: FDA-Public Use
  Company Number: FABR-11305

PATIENT
  Age: 34 Year
  Sex: Female
  Weight: 110 kg

DRUGS (7)
  1. FABRAZYME [Suspect]
     Indication: FABRY'S DISEASE
     Dosage: 110 MG Q2WKS IV
     Route: 042
     Dates: start: 20060121
  2. FABRAZYME [Suspect]
     Indication: FABRY'S DISEASE
     Dosage: 110 MG Q2WKS IV
     Route: 042
     Dates: start: 20031115, end: 20051111
  3. LISINOPRIL [Concomitant]
  4. TRAZODONE [Concomitant]
  5. CARBAMAZEPINE [Concomitant]
  6. OMEPRAZOLE [Concomitant]
  7. ASPIRIN [Concomitant]

REACTIONS (1)
  - BREAST CANCER FEMALE [None]
